FAERS Safety Report 8363165-5 (Version None)
Quarter: 2012Q2

REPORT INFORMATION
  Report Type: 
  Country: None (occurrence: None)
  Receive Date: 20120516
  Receipt Date: 20111108
  Transmission Date: 20120825
  Serious: Yes (Hospitalization, Other)
  Sender: FDA-Public Use
  Company Number: US-ALEXION-A201101665

PATIENT
  Sex: Female

DRUGS (25)
  1. SOLIRIS [Suspect]
     Dosage: 900 MG, QW
     Route: 042
     Dates: start: 20090107
  2. ALLOPURINOL [Concomitant]
     Dosage: UNK
  3. ZINC SULFATE [Concomitant]
     Dosage: 1 CAP, QD
  4. MAGNESIUM OXIDE [Concomitant]
     Dosage: 800 MG, TID
  5. ALBUMIN (HUMAN) [Concomitant]
     Dosage: UNK
  6. ZOFRAN [Concomitant]
     Indication: NAUSEA
     Dosage: 4 MG, PRN
  7. CLONIDINE [Concomitant]
     Indication: HYPERTENSION
     Dosage: UNK
     Route: 062
  8. ESOMEPRAZOLE MAGNESIUM [Concomitant]
     Dosage: 1 TAB, QD
  9. LOPRESSOR [Concomitant]
     Indication: HYPERTENSION
     Dosage: 25 MG, TID
  10. ACTIGALL [Concomitant]
     Dosage: 300 MG, TID
  11. COUMADIN [Concomitant]
     Dosage: 5 MG, QD
     Dates: end: 20111101
  12. INSULIN [Concomitant]
     Indication: DIABETES MELLITUS
     Dosage: SLIDING SCALE
  13. TACROLIMUS [Suspect]
     Dosage: UNK
  14. ERGOCALCIFEROL [Concomitant]
     Dosage: 50,000 UNITS, QW
  15. NYSTATIN [Concomitant]
     Dosage: 15 ML, QID
  16. VALCYTE [Concomitant]
     Dosage: 450 MG, QD
     Route: 048
  17. SOLIRIS [Suspect]
     Indication: PAROXYSMAL NOCTURNAL HAEMOGLOBINURIA
     Dosage: UNK
     Route: 042
     Dates: start: 20080516
  18. CORTEF [Concomitant]
     Dosage: 50 MG, TID
  19. SERTRALINE HYDROCHLORIDE [Concomitant]
     Dosage: 100 MG, QD
  20. LOPERAMIDE [Concomitant]
     Indication: DIARRHOEA
     Dosage: 4 MG, PRN
     Route: 048
  21. SOLIRIS [Suspect]
     Dosage: 900 MG, Q12 DAYS
     Dates: start: 20081126
  22. VITAMIN B6 [Concomitant]
     Dosage: 50 MG, QD
  23. BACTRIM [Concomitant]
     Indication: ANTIFUNGAL PROPHYLAXIS
     Dosage: 1 TAB, M,W,F
  24. COUMADIN [Concomitant]
     Dosage: 2.5 MG, QD
     Dates: start: 20111101
  25. AMBIEN [Concomitant]
     Indication: INSOMNIA
     Dosage: 10 MG, QD

REACTIONS (5)
  - ORAL FUNGAL INFECTION [None]
  - GASTROINTESTINAL FUNGAL INFECTION [None]
  - RECTAL HAEMORRHAGE [None]
  - INTESTINAL ULCER [None]
  - HAEMOLYSIS [None]
